FAERS Safety Report 25089161 (Version 1)
Quarter: 2025Q1

REPORT INFORMATION
  Report Type: Spontaneous
  Country: CH (occurrence: CH)
  Receive Date: 20250318
  Receipt Date: 20250318
  Transmission Date: 20250408
  Serious: Yes (Death)
  Sender: PAREXEL
  Company Number: CH-STEMLINE THERAPEUTICS, INC-2025-STML-CH000816

PATIENT

DRUGS (1)
  1. TAGRAXOFUSP [Suspect]
     Active Substance: TAGRAXOFUSP
     Indication: Blastic plasmacytoid dendritic cell neoplasia
     Route: 065

REACTIONS (3)
  - Malignant neoplasm progression [Fatal]
  - Therapy partial responder [Unknown]
  - Insurance issue [Unknown]
